FAERS Safety Report 9182167 (Version 1)
Quarter: 2012Q4

REPORT INFORMATION
  Report Type: 
  Country: GB (occurrence: GB)
  Receive Date: 20121030
  Receipt Date: 20121030
  Transmission Date: 20130627
  Serious: Yes (Other)
  Sender: FDA-Public Use
  Company Number: GB-009507513-1210GBR012139

PATIENT
  Age: 18 Year
  Sex: Female
  Weight: 45 kg

DRUGS (1)
  1. MIRTAZAPINE [Suspect]
     Indication: DEPRESSION SUICIDAL
     Dosage: 45 mg, UNK
     Dates: start: 20110501, end: 20110801

REACTIONS (1)
  - Restless legs syndrome [Not Recovered/Not Resolved]
